FAERS Safety Report 6440008-8 (Version None)
Quarter: 2009Q4

REPORT INFORMATION
  Report Type: 
  Country: None (occurrence: None)
  Receive Date: 20091112
  Receipt Date: 20091112
  Transmission Date: 20100525
  Serious: Yes (Life-Threatening, Hospitalization, Disabling)
  Sender: FDA-Public Use
  Company Number: None

PATIENT
  Age: 45 Year
  Sex: Female
  Weight: 68.0396 kg

DRUGS (1)
  1. YAZ [Suspect]
     Indication: UTERINE HAEMORRHAGE
     Dosage: ONE TAB.,24 LIGHT PINK. 4 DAILY P.O. CONSECUTIVE DAY OF MENSTRUAL
     Route: 048
     Dates: start: 20061227, end: 20090925

REACTIONS (15)
  - ASTHENIA [None]
  - BENIGN VASCULAR NEOPLASM [None]
  - BREAST SWELLING [None]
  - DEPRESSION [None]
  - DYSPNOEA [None]
  - ERYTHEMA [None]
  - FEELING ABNORMAL [None]
  - FOOD ALLERGY [None]
  - JOINT SWELLING [None]
  - MALAISE [None]
  - MENORRHAGIA [None]
  - MUSCLE TIGHTNESS [None]
  - OEDEMA PERIPHERAL [None]
  - SWELLING FACE [None]
  - VENA CAVA THROMBOSIS [None]
